FAERS Safety Report 23504390 (Version 1)
Quarter: 2024Q1

REPORT INFORMATION
  Report Type: Spontaneous
  Country: US (occurrence: US)
  Receive Date: 20240209
  Receipt Date: 20240209
  Transmission Date: 20240410
  Serious: No
  Sender: FDA-Public Use
  Company Number: US-IGSA-BIG0021971

PATIENT
  Age: 56 Year
  Sex: Male
  Weight: 121 kg

DRUGS (5)
  1. PROLASTIN-C LIQUID [Suspect]
     Active Substance: .ALPHA.1-PROTEINASE INHIBITOR HUMAN
     Indication: Alpha-1 antitrypsin deficiency
     Dosage: 7260 MILLIGRAM, Q.WK.
     Route: 042
     Dates: start: 20190430
  2. IBUPROFEN [Concomitant]
     Active Substance: IBUPROFEN
  3. ALPRAZOLAM [Concomitant]
     Active Substance: ALPRAZOLAM
  4. TESTOSTERONE CYPIONATE [Concomitant]
     Active Substance: TESTOSTERONE CYPIONATE
  5. BREZTRI [Concomitant]
     Active Substance: BUDESONIDE\FORMOTEROL\GLYCOPYRROLATE

REACTIONS (2)
  - Constipation [Not Recovered/Not Resolved]
  - Abdominal distension [Not Recovered/Not Resolved]

NARRATIVE: CASE EVENT DATE: 20230119
